FAERS Safety Report 5275829-0 (Version None)
Quarter: 2007Q1

REPORT INFORMATION
  Report Type: 
  Country: None (occurrence: None)
  Receive Date: 20070326
  Receipt Date: 20070320
  Transmission Date: 20070707
  Serious: Yes (Death, Life-Threatening, Hospitalization, Other)
  Sender: FDA-Public Use
  Company Number: PHHO2007BE03840

PATIENT
  Age: 70 Year
  Sex: Female
  Weight: 52 kg

DRUGS (7)
  1. ZOMETA [Suspect]
     Indication: METASTASES TO BONE
     Dosage: 4MG EVERY 3 WEEKS
     Route: 042
     Dates: start: 20041115, end: 20070205
  2. TERAZOSIN HCL [Concomitant]
  3. DIFLUCAN [Concomitant]
  4. VELCADE [Concomitant]
  5. ACE INHIBITOR NOS [Suspect]
  6. PERINDOPRIL ERBUMINE [Concomitant]
  7. OMEPRAZOLE [Concomitant]

REACTIONS (8)
  - BLOOD CREATININE INCREASED [None]
  - HAEMODIALYSIS [None]
  - HYPOTENSION [None]
  - MALIGNANT NEOPLASM PROGRESSION [None]
  - PANCREATITIS [None]
  - PULMONARY SEPSIS [None]
  - RENAL FAILURE ACUTE [None]
  - TUMOUR LYSIS SYNDROME [None]
